FAERS Safety Report 12617944 (Version 2)
Quarter: 2016Q4

REPORT INFORMATION
  Report Type: Report from Study
  Country: GB (occurrence: GB)
  Receive Date: 20160803
  Receipt Date: 20161025
  Transmission Date: 20170207
  Serious: Yes (Hospitalization, Other)
  Sender: FDA-Public Use
  Company Number: GB-ROCHE-1519463

PATIENT
  Sex: Female
  Weight: 106 kg

DRUGS (13)
  1. NABUMETONE. [Concomitant]
     Active Substance: NABUMETONE
  2. OMEPRAZOLE. [Concomitant]
     Active Substance: OMEPRAZOLE
  3. TRAMADOL. [Concomitant]
     Active Substance: TRAMADOL
  4. METHOTREXATE. [Concomitant]
     Active Substance: METHOTREXATE
  5. PARACETAMOL [Concomitant]
     Active Substance: ACETAMINOPHEN
  6. INSULIN [Concomitant]
     Active Substance: INSULIN NOS
  7. TRAZODONE [Concomitant]
     Active Substance: TRAZODONE HYDROCHLORIDE
  8. METFORMIN [Concomitant]
     Active Substance: METFORMIN HYDROCHLORIDE
     Route: 065
  9. RITUXIMAB [Suspect]
     Active Substance: RITUXIMAB
     Indication: RHEUMATOID ARTHRITIS
     Route: 042
     Dates: start: 20100510, end: 20160419
  10. MONTELUKAST [Concomitant]
     Active Substance: MONTELUKAST SODIUM
  11. AMITRIPTYLINE [Concomitant]
     Active Substance: AMITRIPTYLINE
  12. TOCILIZUMAB [Suspect]
     Active Substance: TOCILIZUMAB
     Indication: RHEUMATOID ARTHRITIS
     Route: 042
     Dates: start: 20130521, end: 20130620
  13. SIMVASTATINE [Concomitant]
     Active Substance: SIMVASTATIN

REACTIONS (4)
  - Paget^s disease of nipple [Unknown]
  - Intraductal proliferative breast lesion [Unknown]
  - Anaemia [Unknown]
  - Diverticulum [Unknown]

NARRATIVE: CASE EVENT DATE: 20160523
